FAERS Safety Report 6805982-6 (Version None)
Quarter: 2010Q2

REPORT INFORMATION
  Report Type: 
  Country: None (occurrence: None)
  Receive Date: 20100629
  Receipt Date: 20080109
  Transmission Date: 20101027
  Serious: No
  Sender: FDA-Public Use
  Company Number: US-PFIZER INC-2007100846

PATIENT
  Age: 43 Year
  Sex: Female

DRUGS (12)
  1. TIKOSYN [Suspect]
     Indication: ATRIAL FLUTTER
     Dates: start: 20070101, end: 20071127
  2. TOPROL-XL [Concomitant]
  3. AMBIEN [Concomitant]
  4. VITAMIN B COMPLEX CAP [Concomitant]
  5. VITAMIN C [Concomitant]
  6. ALLEGRA [Concomitant]
  7. OMEPRAZOLE [Concomitant]
  8. VIVELLE [Concomitant]
  9. PROGESTERONE [Concomitant]
  10. LORAZEPAM [Concomitant]
  11. VITAMIN E [Concomitant]
  12. CITRUCEL [Concomitant]

REACTIONS (1)
  - GINGIVITIS [None]
